FAERS Safety Report 7524157-9 (Version None)
Quarter: 2011Q2

REPORT INFORMATION
  Report Type: 
  Country: None (occurrence: None)
  Receive Date: 20110606
  Receipt Date: 20110527
  Transmission Date: 20111010
  Serious: No
  Sender: FDA-Public Use
  Company Number: US-BIOGENIDEC-2011BI001962

PATIENT
  Sex: Female

DRUGS (5)
  1. HIGH BLOOD PRESSURE MEDICATION (NOS) [Concomitant]
     Indication: HYPERTENSION
  2. TYSABRI [Suspect]
     Indication: MULTIPLE SCLEROSIS
     Route: 042
     Dates: start: 20091113, end: 20110502
  3. CHOLESTEROL MEDICATION (NOS) [Concomitant]
     Indication: BLOOD CHOLESTEROL
  4. TYSABRI [Suspect]
     Route: 042
     Dates: start: 20061016, end: 20070416
  5. WELLBUTRIN [Concomitant]
     Indication: ANXIETY
     Dates: start: 20090101

REACTIONS (8)
  - MEMORY IMPAIRMENT [None]
  - BONE PAIN [None]
  - MUSCLE TIGHTNESS [None]
  - BURNING SENSATION [None]
  - SUBCUTANEOUS NODULE [None]
  - DEAFNESS [None]
  - PRURITUS [None]
  - HEARING IMPAIRED [None]
